FAERS Safety Report 25613370 (Version 1)
Quarter: 2025Q3

REPORT INFORMATION
  Report Type: Spontaneous
  Country: US (occurrence: None)
  Receive Date: 20250727
  Receipt Date: 20250727
  Transmission Date: 20251020
  Serious: Yes (Hospitalization)
  Sender: FDA-CTU
  Company Number: None

PATIENT
  Age: 78 Year
  Sex: Male
  Weight: 66 kg

DRUGS (1)
  1. SEMAGLUTIDE [Suspect]
     Active Substance: SEMAGLUTIDE
     Indication: Diabetes mellitus
     Route: 058
     Dates: start: 20230610, end: 20250724

REACTIONS (5)
  - Abnormal loss of weight [None]
  - Muscle atrophy [None]
  - Tachycardia [None]
  - Metabolic acidosis [None]
  - Confusional state [None]

NARRATIVE: CASE EVENT DATE: 20250724
